FAERS Safety Report 5173753-5 (Version None)
Quarter: 2006Q4

REPORT INFORMATION
  Report Type: 
  Country: None (occurrence: None)
  Receive Date: 20061214
  Receipt Date: 20061204
  Transmission Date: 20070319
  Serious: Yes (Hospitalization)
  Sender: FDA-Public Use
  Company Number: 2006SE06505

PATIENT
  Age: 80 Year
  Sex: Male

DRUGS (8)
  1. KENZEN [Suspect]
     Indication: HYPERTENSIVE CARDIOMYOPATHY
     Route: 048
  2. NUREFLEX [Interacting]
     Indication: ARTHROPATHY
     Route: 048
     Dates: start: 20060321, end: 20060512
  3. ASPEGIC 1000 [Interacting]
     Indication: MYOCARDIAL ISCHAEMIA
     Route: 048
     Dates: end: 20060512
  4. KREDEX [Concomitant]
     Indication: HYPERTENSIVE CARDIOMYOPATHY
     Route: 048
  5. NITRODERM [Concomitant]
     Indication: MYOCARDIAL ISCHAEMIA
     Route: 059
  6. PRAVASTATIN [Concomitant]
     Indication: HYPERCHOLESTEROLAEMIA
     Route: 048
  7. XATRAL [Concomitant]
     Indication: BENIGN NEOPLASM OF PROSTATE
     Route: 048
  8. ARANESP [Concomitant]
     Indication: DRUG USE FOR UNKNOWN INDICATION
     Route: 058

REACTIONS (2)
  - DRUG INTERACTION [None]
  - RENAL FAILURE ACUTE [None]
